FAERS Safety Report 10378338 (Version 1)
Quarter: 2014Q1

REPORT INFORMATION
  Report Type: Spontaneous
  Country: US (occurrence: None)
  Receive Date: 20140306
  Receipt Date: 20140306
  Transmission Date: 20141002
  Serious: Yes (Other)
  Sender: FDA-Public Use
  Company Number: 163-21880-13014659

PATIENT
  Age: 74 Year
  Sex: Female
  Weight: 68.86 kg

DRUGS (9)
  1. REVLIMID (LENALIDOMIDE) (5 MILLIGRAM, CAPSULES) [Suspect]
     Indication: PLASMA CELL MYELOMA
     Dosage: 5 MG, 21 IN 28 D, PO
     Route: 048
     Dates: start: 20120116, end: 20120618
  2. DEXAMETHASONE [Concomitant]
  3. LOVENOX (HEPARIN-FRACTION, SODIUM SALT) [Concomitant]
  4. DILAUDID (HYDROMORPHONE HYDROCHLORIDE) [Concomitant]
  5. BENTYL (DICYCLOVERINE HYDROCHLORIDE) [Concomitant]
  6. LOMOTIL [Concomitant]
  7. ENALAPRIL [Concomitant]
  8. VALTREX (VALACICLOVIR HYDROCHLORIDE) [Concomitant]
  9. GABAPENTIN [Concomitant]

REACTIONS (4)
  - Dyspnoea [None]
  - Fatigue [None]
  - White blood cell count decreased [None]
  - Granulocyte count decreased [None]
